FAERS Safety Report 4879757-1 (Version None)
Quarter: 2006Q1

REPORT INFORMATION
  Report Type: 
  Country: None (occurrence: None)
  Receive Date: 20060113
  Receipt Date: 19981113
  Transmission Date: 20060701
  Serious: Yes (Hospitalization, Other)
  Sender: FDA-Public Use
  Company Number: FR-GLAXOSMITHKLINE-B0061473A

PATIENT
  Age: 54 Year
  Sex: Female
  Weight: 56 kg

DRUGS (9)
  1. ACYCLOVIR [Suspect]
     Indication: HERPES ZOSTER
     Dosage: 10MG THREE TIMES PER DAY
     Route: 042
     Dates: start: 19980827, end: 19980902
  2. CHEMOTHERAPY [Concomitant]
     Indication: BREAST CANCER
  3. GROWTH FACTOR [Concomitant]
     Route: 042
  4. PARACETAMOL + CODEINE PHOSPHATE [Concomitant]
  5. POLARAMINE [Concomitant]
  6. TAMOXIFEN CITRATE [Concomitant]
  7. RANITIDINE [Concomitant]
  8. DEXAMETHASONE TAB [Concomitant]
  9. TAXOL [Concomitant]

REACTIONS (6)
  - ANXIETY [None]
  - CONFUSIONAL STATE [None]
  - DELIRIUM [None]
  - MANIA [None]
  - MENTAL DISORDER [None]
  - PERSONALITY DISORDER [None]
